FAERS Safety Report 21949171 (Version 3)
Quarter: 2023Q1

REPORT INFORMATION
  Report Type: Report from Study
  Country: US (occurrence: US)
  Receive Date: 20230203
  Receipt Date: 20230301
  Transmission Date: 20230417
  Serious: Yes (Other)
  Sender: FDA-Public Use
  Company Number: US-SA-SAC20230124001589

PATIENT
  Age: 64 Year
  Sex: Female

DRUGS (1)
  1. DRONEDARONE [Suspect]
     Active Substance: DRONEDARONE
     Indication: Atrial fibrillation
     Dosage: 400 MG, BID
     Route: 048
     Dates: start: 20221231, end: 20230220

REACTIONS (7)
  - Atrial fibrillation [Unknown]
  - Dizziness [Unknown]
  - Heart rate increased [Unknown]
  - Arthralgia [Unknown]
  - Peripheral swelling [Unknown]
  - Asthenia [Unknown]
  - Fatigue [Unknown]

NARRATIVE: CASE EVENT DATE: 20230123
